FAERS Safety Report 8964746 (Version 2)
Quarter: 2013Q2

REPORT INFORMATION
  Report Type: Spontaneous
  Country: US (occurrence: US)
  Receive Date: 20121213
  Receipt Date: 20130411
  Transmission Date: 20140414
  Serious: Yes (Other)
  Sender: FDA-Public Use
  Company Number: US-TEVA-374994USA

PATIENT
  Age: 29 Year
  Sex: Female

DRUGS (1)
  1. COPAXONE [Suspect]
     Indication: MULTIPLE SCLEROSIS
     Dates: start: 20120928

REACTIONS (4)
  - Multiple sclerosis relapse [Unknown]
  - Treatment failure [Unknown]
  - Hypoaesthesia [Unknown]
  - Visual impairment [Unknown]
